FAERS Safety Report 16178047 (Version 2)
Quarter: 2019Q2

REPORT INFORMATION
  Report Type: Spontaneous
  Country: NO (occurrence: NO)
  Receive Date: 20190410
  Receipt Date: 20190417
  Transmission Date: 20190711
  Serious: No
  Sender: FDA-Public Use
  Company Number: NO-SA-2016SA205327

PATIENT
  Age: 24 Year
  Sex: Female

DRUGS (2)
  1. LEMTRADA [Suspect]
     Active Substance: ALEMTUZUMAB
     Dosage: UNK UNK,UNK
     Route: 042
     Dates: start: 20160904
  2. LEMTRADA [Suspect]
     Active Substance: ALEMTUZUMAB
     Indication: MULTIPLE SCLEROSIS
     Dosage: UNK UNK,UNK
     Route: 042
     Dates: start: 20150914

REACTIONS (5)
  - Skin burning sensation [Unknown]
  - Pruritus [Unknown]
  - Urinary tract infection [Unknown]
  - Wound secretion [Unknown]
  - Skin wound [Unknown]
